FAERS Safety Report 21327858 (Version 1)
Quarter: 2022Q3

REPORT INFORMATION
  Report Type: Spontaneous
  Country: US (occurrence: US)
  Receive Date: 20220913
  Receipt Date: 20220913
  Transmission Date: 20221026
  Serious: Yes (Other)
  Sender: FDA-Public Use
  Company Number: US-UCBSA-2022053862

PATIENT
  Age: 64 Year
  Sex: Male

DRUGS (2)
  1. BRIVIACT [Suspect]
     Active Substance: BRIVARACETAM
     Indication: Partial seizures
     Dosage: 75 MILLIGRAM, 2X/DAY (BID)
     Dates: start: 20170901
  2. DOXYCYCLINE [Suspect]
     Active Substance: DOXYCYCLINE
     Indication: Product used for unknown indication
     Dosage: UNK
     Dates: start: 2022, end: 202209

REACTIONS (1)
  - Seizure [Not Recovered/Not Resolved]

NARRATIVE: CASE EVENT DATE: 20220903
